FAERS Safety Report 26077905 (Version 1)
Quarter: 2025Q4

REPORT INFORMATION
  Report Type: Spontaneous
  Country: US (occurrence: US)
  Receive Date: 20251122
  Receipt Date: 20251122
  Transmission Date: 20260117
  Serious: No
  Sender: MDD OPERATIONS
  Company Number: US-MDD US Operations-MDD202510-004456

PATIENT
  Age: 69 Year
  Sex: Female

DRUGS (1)
  1. ONAPGO [Suspect]
     Active Substance: APOMORPHINE HYDROCHLORIDE
     Indication: Product used for unknown indication
     Dosage: AS ORDERED
     Route: 058

REACTIONS (3)
  - Freezing phenomenon [Unknown]
  - Therapy cessation [Unknown]
  - Device breakage [Unknown]

NARRATIVE: CASE EVENT DATE: 20251024
